FAERS Safety Report 24787239 (Version 1)
Quarter: 2024Q4

REPORT INFORMATION
  Report Type: Spontaneous
  Country: US (occurrence: US)
  Receive Date: 20241230
  Receipt Date: 20241230
  Transmission Date: 20250115
  Serious: Yes (Other)
  Sender: ALEMBIC
  Company Number: US-ALEMBIC PHARMACUETICALS LIMITED-2024SCAL001856

PATIENT

DRUGS (3)
  1. DESVENLAFAXINE [Suspect]
     Active Substance: DESVENLAFAXINE
     Indication: Product used for unknown indication
     Dosage: BOTTLE 1
     Route: 065
     Dates: start: 2024
  2. DESVENLAFAXINE [Suspect]
     Active Substance: DESVENLAFAXINE
     Dosage: BOTTLE 2
     Route: 065
     Dates: start: 2024
  3. DESVENLAFAXINE [Suspect]
     Active Substance: DESVENLAFAXINE
     Dosage: BOTTLE 3
     Route: 065
     Dates: start: 2024

REACTIONS (10)
  - Suicidal ideation [Recovering/Resolving]
  - Product lot number issue [Unknown]
  - Feeling abnormal [Recovering/Resolving]
  - Intrusive thoughts [Recovering/Resolving]
  - Panic attack [Recovering/Resolving]
  - Anxiety [Recovering/Resolving]
  - Tinnitus [Recovering/Resolving]
  - Headache [Recovering/Resolving]
  - Fatigue [Recovering/Resolving]
  - Decreased appetite [Recovering/Resolving]
